FAERS Safety Report 4725938-7 (Version None)
Quarter: 2005Q3

REPORT INFORMATION
  Report Type: 
  Country: None (occurrence: None)
  Receive Date: 20050727
  Receipt Date: 20050603
  Transmission Date: 20060218
  Serious: Yes (Other)
  Sender: FDA-Public Use
  Company Number: US-GLAXOSMITHKLINE-A0561890B

PATIENT
  Sex: Female
  Weight: 2.4 kg

DRUGS (6)
  1. LAMICTAL [Suspect]
     Indication: BIPOLAR DISORDER
  2. ZOLOFT [Concomitant]
     Indication: BIPOLAR DISORDER
     Dosage: 125MG PER DAY
     Dates: start: 20050327
  3. SEROQUEL [Concomitant]
     Indication: BIPOLAR DISORDER
     Dosage: 400MG PER DAY
     Dates: end: 20041203
  4. PROVIGIL [Concomitant]
     Indication: BIPOLAR DISORDER
     Dosage: 200MG PER DAY
     Dates: end: 20041203
  5. XANAX [Concomitant]
     Indication: ANXIETY
     Dosage: .5MG PER DAY
     Dates: end: 20041203
  6. VIOXX [Concomitant]
     Indication: PAIN
     Dosage: 25MG PER DAY
     Dates: end: 20041203

REACTIONS (3)
  - DRUG EXPOSURE DURING PREGNANCY [None]
  - JAUNDICE NEONATAL [None]
  - PREMATURE BABY [None]
